FAERS Safety Report 4811719-2 (Version None)
Quarter: 2005Q4

REPORT INFORMATION
  Report Type: 
  Country: None (occurrence: None)
  Receive Date: 20051025
  Receipt Date: 20051011
  Transmission Date: 20060501
  Serious: Yes (Hospitalization)
  Sender: FDA-Public Use
  Company Number: 200510634BFR

PATIENT
  Age: 41 Year
  Sex: Female

DRUGS (3)
  1. CIPROFLOXACIN HCL [Suspect]
     Indication: LEUKOCYTOSIS
     Dosage: 250 MG, QD, ORAL
     Route: 048
     Dates: start: 20050507, end: 20050515
  2. BROMAZEPAM [Concomitant]
  3. NOCTRAN 10 [Concomitant]

REACTIONS (16)
  - ANOREXIA [None]
  - ASTHENIA [None]
  - COORDINATION ABNORMAL [None]
  - DYSSTASIA [None]
  - FOLATE DEFICIENCY [None]
  - GENERAL PHYSICAL HEALTH DETERIORATION [None]
  - HYPOAESTHESIA [None]
  - INFLAMMATION [None]
  - MACROCYTOSIS [None]
  - NEPHROPATHY [None]
  - PARAESTHESIA [None]
  - POLYNEUROPATHY [None]
  - RENAL FAILURE ACUTE [None]
  - VOMITING [None]
  - WEIGHT DECREASED [None]
  - WHITE BLOOD CELL COUNT INCREASED [None]
